FAERS Safety Report 23826840 (Version 8)
Quarter: 2025Q2

REPORT INFORMATION
  Report Type: Spontaneous
  Country: US (occurrence: US)
  Receive Date: 20240507
  Receipt Date: 20250528
  Transmission Date: 20250716
  Serious: Yes (Other)
  Sender: PFIZER
  Company Number: US-PFIZER INC-202400100936

PATIENT
  Age: 64 Year
  Sex: Female

DRUGS (2)
  1. IBRANCE [Suspect]
     Active Substance: PALBOCICLIB
     Route: 048
     Dates: start: 20240420
  2. IBRANCE [Suspect]
     Active Substance: PALBOCICLIB
     Route: 048
     Dates: start: 20240420

REACTIONS (9)
  - Breast mass [Unknown]
  - Muscular weakness [Recovering/Resolving]
  - Dyspepsia [Not Recovered/Not Resolved]
  - Secretion discharge [Recovering/Resolving]
  - Red blood cell count decreased [Not Recovered/Not Resolved]
  - Dry eye [Unknown]
  - Urinary tract infection bacterial [Unknown]
  - Anaemia [Not Recovered/Not Resolved]
  - Nasal congestion [Unknown]
